FAERS Safety Report 23850143 (Version 3)
Quarter: 2024Q2

REPORT INFORMATION
  Report Type: Spontaneous
  Country: GB (occurrence: GB)
  Receive Date: 20240513
  Receipt Date: 20240624
  Transmission Date: 20240715
  Serious: Yes (Hospitalization, Other)
  Sender: FDA-Public Use
  Company Number: GB-MYLANLABS-2024M1024342

PATIENT
  Sex: Male

DRUGS (8)
  1. CLOZARIL [Suspect]
     Active Substance: CLOZAPINE
     Indication: Schizophrenia
     Dosage: 325 MILLIGRAM, QD (150MG IN MORNING, 175 MG IN NIGHT)
     Route: 048
     Dates: start: 20240208
  2. CLOZARIL [Suspect]
     Active Substance: CLOZAPINE
     Dosage: (REDUCED DOSE)
     Route: 048
  3. VENLAFAXINE [Suspect]
     Active Substance: VENLAFAXINE HYDROCHLORIDE
     Indication: Product used for unknown indication
     Dosage: UNK, BID (2 X TABLETS)
     Route: 065
  4. SERTRALINE [Suspect]
     Active Substance: SERTRALINE HYDROCHLORIDE
     Indication: Anxiety
     Dosage: 50 MILLIGRAM, AM (IN MORNING)
     Route: 065
  5. SERTRALINE [Concomitant]
     Active Substance: SERTRALINE HYDROCHLORIDE
     Dosage: 50 MILLIGRAM, AM (IN MORNING)
     Route: 065
     Dates: start: 20240425
  6. SCOPOLAMINE HYDROBROMIDE [Concomitant]
     Active Substance: SCOPOLAMINE HYDROBROMIDE
     Dosage: 300 MICROGRAM, TID (THREE TIMES A DAY)
     Route: 048
     Dates: start: 20240215
  7. RISPERIDONE [Concomitant]
     Active Substance: RISPERIDONE
     Dosage: UNK
     Route: 065
     Dates: end: 202402
  8. FEXOFENADINE [Concomitant]
     Active Substance: FEXOFENADINE HYDROCHLORIDE
     Dosage: 180 MILLIGRAM
     Route: 065

REACTIONS (3)
  - Generalised tonic-clonic seizure [Recovered/Resolved]
  - Eosinophilia [Unknown]
  - Wrong product administered [Unknown]
